FAERS Safety Report 9697287 (Version 1)
Quarter: 2013Q4

REPORT INFORMATION
  Report Type: Spontaneous
  Country: US (occurrence: None)
  Receive Date: 20131119
  Receipt Date: 20131119
  Transmission Date: 20140711
  Serious: No
  Sender: FDA-Public Use
  Company Number: None

PATIENT
  Age: 52 Year
  Sex: 0
  Weight: 61.69 kg

DRUGS (1)
  1. TOPIRAMATE [Suspect]
     Dosage: 25 MG PO TAB?1ST WEEK 2 DAILY ?2N WEEK 4 ?3N WEEK 6 ETC?I HAVE 6 IN BOX PM BOX?MOUTH
     Route: 048
     Dates: start: 20131005

REACTIONS (10)
  - Back pain [None]
  - Fall [None]
  - Arthropathy [None]
  - Local swelling [None]
  - Oropharyngeal pain [None]
  - Mood altered [None]
  - Musculoskeletal stiffness [None]
  - Loss of consciousness [None]
  - Body temperature fluctuation [None]
  - Pain [None]
